FAERS Safety Report 18769076 (Version 3)
Quarter: 2021Q1

REPORT INFORMATION
  Report Type: Report from Study
  Country: AU (occurrence: AU)
  Receive Date: 20210121
  Receipt Date: 20210127
  Transmission Date: 20210419
  Serious: Yes (Death)
  Sender: FDA-Public Use
  Company Number: AU-PFIZER INC-8-94252-004W

PATIENT
  Age: 24 Year
  Sex: Male
  Weight: 116 kg

DRUGS (4)
  1. OXYCODONE [Suspect]
     Active Substance: OXYCODONE
     Dosage: /DAY
  2. CLONAZEPAM. [Suspect]
     Active Substance: CLONAZEPAM
     Dosage: /DAY
  3. DIAZEPAM. [Suspect]
     Active Substance: DIAZEPAM
     Dosage: UNK (/DAY)
  4. THIORIDAZINE [Suspect]
     Active Substance: THIORIDAZINE
     Dosage: /DAY

REACTIONS (1)
  - Toxicity to various agents [Fatal]
